FAERS Safety Report 9822017 (Version 3)
Quarter: 2014Q1

REPORT INFORMATION
  Report Type: Spontaneous
  Country: FR (occurrence: FR)
  Receive Date: 20140116
  Receipt Date: 20140121
  Transmission Date: 20141002
  Serious: Yes (Other)
  Sender: FDA-Public Use
  Company Number: FR-JNJFOC-20131107740

PATIENT
  Age: 27 Year
  Sex: Male

DRUGS (1)
  1. SIMPONI [Suspect]
     Indication: ANKYLOSING SPONDYLITIS
     Dosage: GOLIMUMAB 50 MG
     Route: 058
     Dates: start: 201301, end: 201308

REACTIONS (2)
  - Pustular psoriasis [Recovered/Resolved]
  - Asthma [Recovered/Resolved]
